FAERS Safety Report 5209114-X (Version None)
Quarter: 2007Q1

REPORT INFORMATION
  Report Type: 
  Country: None (occurrence: None)
  Receive Date: 20070116
  Receipt Date: 20070108
  Transmission Date: 20070707
  Serious: Yes (Other)
  Sender: FDA-Public Use
  Company Number: US-AVENTIS-200710197US

PATIENT
  Sex: Female

DRUGS (2)
  1. AMARYL [Suspect]
  2. AVANDIA [Suspect]

REACTIONS (5)
  - ANOREXIA [None]
  - FLUID RETENTION [None]
  - OVERDOSE [None]
  - SOMNOLENCE [None]
  - WEIGHT INCREASED [None]
